FAERS Safety Report 5818197-5 (Version None)
Quarter: 2008Q3

REPORT INFORMATION
  Report Type: 
  Country: None (occurrence: None)
  Receive Date: 20080722
  Receipt Date: 20071031
  Transmission Date: 20090109
  Serious: No
  Sender: FDA-Public Use
  Company Number: US-BAYER-USA-2002-007569

PATIENT
  Age: 54 Year
  Sex: Male

DRUGS (7)
  1. MAGNEVIST [Suspect]
     Indication: NUCLEAR MAGNETIC RESONANCE IMAGING
     Dosage: UNIT DOSE: 20 ML
     Route: 042
     Dates: start: 20021104, end: 20021104
  2. ASPIRIN [Concomitant]
  3. MONOPRIL [Concomitant]
  4. PLAVIX [Concomitant]
  5. KLONOPIN [Concomitant]
  6. CHLORASEPTIC [Concomitant]
  7. HYDROXYZINE [Concomitant]

REACTIONS (2)
  - PRURITUS [None]
  - URTICARIA [None]
